FAERS Safety Report 5685337-0 (Version None)
Quarter: 2008Q1

REPORT INFORMATION
  Report Type: 
  Country: None (occurrence: None)
  Receive Date: 20080328
  Receipt Date: 20080318
  Transmission Date: 20080703
  Serious: Yes (Death, Hospitalization)
  Sender: FDA-Public Use
  Company Number: GB-PFIZER INC-2008024937

PATIENT
  Age: 87 Year
  Sex: Male

DRUGS (18)
  1. DOXYCYCLINE [Suspect]
     Route: 048
     Dates: start: 20080226, end: 20080228
  2. AMOXICILLIN + CLAVULANATE POTASSIUM [Suspect]
     Route: 042
     Dates: start: 20080226, end: 20080229
  3. ATENOLOL [Concomitant]
  4. BACTROBAN [Concomitant]
  5. CALCICHEW-D3 [Concomitant]
  6. CIPROFLOXACIN [Concomitant]
  7. CITALOPRAM [Concomitant]
  8. ENOXAPARIN SODIUM [Concomitant]
  9. FINASTERIDE [Concomitant]
  10. FUROSEMIDE [Concomitant]
  11. GLICLAZIDE [Concomitant]
  12. HALOPERIDOL [Concomitant]
  13. ISOSORBIDE MONONITRATE [Concomitant]
  14. LACTULOSE [Concomitant]
  15. LORAZEPAM [Concomitant]
  16. NICOTINELL [Concomitant]
  17. OXYBUTYNIN CHLORIDE [Concomitant]
  18. ZOPICLONE [Concomitant]

REACTIONS (2)
  - HEPATOCELLULAR INJURY [None]
  - LOWER RESPIRATORY TRACT INFECTION [None]
